FAERS Safety Report 11263677 (Version 2)
Quarter: 2015Q3

REPORT INFORMATION
  Report Type: Spontaneous
  Country: CH (occurrence: CH)
  Receive Date: 20150713
  Receipt Date: 20150728
  Transmission Date: 20151125
  Serious: Yes (Other)
  Sender: FDA-Public Use
  Company Number: CH-PFIZER INC-2015220451

PATIENT
  Age: 89 Year
  Sex: Male

DRUGS (5)
  1. TRAMAL [Concomitant]
     Active Substance: TRAMADOL
     Dosage: 100 MG, 2X/DAY
     Dates: end: 20150506
  2. COSAAR PLUS [Suspect]
     Active Substance: HYDROCHLOROTHIAZIDE\LOSARTAN
     Indication: HYPERTENSION
     Dosage: 12.5/50 MG, 1X/DAY
     Route: 048
     Dates: start: 201406, end: 20150201
  3. ALDACTONE [Suspect]
     Active Substance: SPIRONOLACTONE
     Dosage: 12.5 MG, 1X/DAY
     Dates: start: 20150202, end: 20150212
  4. COSAAR PLUS [Suspect]
     Active Substance: HYDROCHLOROTHIAZIDE\LOSARTAN
     Dosage: 12.5/50 MG, 2X/DAY
     Route: 048
     Dates: start: 20150202
  5. NOVALGIN [Suspect]
     Active Substance: METAMIZOLE SODIUM
     Indication: ARTHRALGIA
     Dosage: 500 MG, 3X/DAY
     Route: 048
     Dates: start: 20141215, end: 20150212

REACTIONS (4)
  - Hepatic enzyme increased [Recovered/Resolved]
  - Thrombocytopenia [Recovering/Resolving]
  - Neutropenia [Recovered/Resolved]
  - Pancytopenia [Recovering/Resolving]

NARRATIVE: CASE EVENT DATE: 20150212
